FAERS Safety Report 7955611-3 (Version None)
Quarter: 2011Q4

REPORT INFORMATION
  Report Type: 
  Country: None (occurrence: None)
  Receive Date: 20111202
  Receipt Date: 20110701
  Transmission Date: 20120403
  Serious: Yes (Other)
  Sender: FDA-Public Use
  Company Number: US-ASTRAZENECA-2011SE39553

PATIENT
  Age: 36 Year
  Sex: Female
  Weight: 54.4 kg

DRUGS (6)
  1. VITAMIN B-12 [Concomitant]
  2. TOPIRAMATE [Suspect]
     Indication: CONVULSION
     Route: 065
  3. VITAMIN D [Concomitant]
  4. NEXIUM [Suspect]
     Indication: DYSPEPSIA
     Route: 048
     Dates: start: 20090101
  5. DILAUDID [Suspect]
     Indication: BACK PAIN
     Dosage: PRN
     Route: 065
  6. ZONEGRAN [Suspect]
     Indication: CONVULSION
     Route: 065

REACTIONS (7)
  - SKIN BURNING SENSATION [None]
  - BREATH ODOUR [None]
  - PREMATURE DELIVERY [None]
  - PULMONARY FIBROSIS [None]
  - MATERNAL EXPOSURE DURING PREGNANCY [None]
  - RASH [None]
  - CONVULSION [None]
